FAERS Safety Report 7758547-6 (Version None)
Quarter: 2011Q3

REPORT INFORMATION
  Report Type: 
  Country: None (occurrence: None)
  Receive Date: 20110919
  Receipt Date: 20110907
  Transmission Date: 20111222
  Serious: Yes (Hospitalization, Other)
  Sender: FDA-Public Use
  Company Number: CA-ELI_LILLY_AND_COMPANY-CA201109001626

PATIENT
  Sex: Female

DRUGS (17)
  1. ZYPREXA [Suspect]
     Indication: SCHIZOAFFECTIVE DISORDER
     Dosage: 5 MG, QD
  2. ASPIRIN [Concomitant]
  3. MODECATE [Concomitant]
  4. ZYPREXA [Suspect]
     Dosage: 15 MG, QD
  5. BENZTROPINE MESYLATE [Concomitant]
  6. RISPERIDONE [Concomitant]
  7. IMOVANE [Concomitant]
  8. ZANTAC [Concomitant]
  9. ZYPREXA [Suspect]
     Dosage: 12.5 MG, QD
  10. KEMADRIN [Concomitant]
  11. FOLIC ACID [Concomitant]
  12. LOXAPINE HCL [Concomitant]
  13. HYDROCHLOROTHIAZIDE [Concomitant]
  14. QUETIAPINE [Concomitant]
  15. CLONAZEPAM [Concomitant]
  16. ZYPREXA [Suspect]
     Dosage: 7.5 MG, QD
  17. VALPROATE SODIUM [Concomitant]

REACTIONS (19)
  - SEPTIC SHOCK [None]
  - HYPOALBUMINAEMIA [None]
  - THROMBOCYTOPENIA [None]
  - TACHYCARDIA [None]
  - HYPERLIPIDAEMIA [None]
  - RENAL FAILURE ACUTE [None]
  - TUBULOINTERSTITIAL NEPHRITIS [None]
  - MONOCLONAL GAMMOPATHY [None]
  - HYPOGLYCAEMIA [None]
  - HYPOTENSION [None]
  - RENAL FAILURE CHRONIC [None]
  - URINARY TRACT INFECTION [None]
  - VAGINAL HAEMORRHAGE [None]
  - HYPERTENSION [None]
  - FLUID OVERLOAD [None]
  - WEIGHT INCREASED [None]
  - ANAEMIA [None]
  - RECTAL HAEMORRHAGE [None]
  - DIABETES MELLITUS [None]
